FAERS Safety Report 4724782-4 (Version None)
Quarter: 2005Q3

REPORT INFORMATION
  Report Type: 
  Country: None (occurrence: None)
  Receive Date: 20050726
  Receipt Date: 20050719
  Transmission Date: 20060218
  Serious: Yes (Disabling)
  Sender: FDA-Public Use
  Company Number: L.23.001.2005

PATIENT
  Age: 65 Year
  Sex: Female

DRUGS (3)
  1. ALBENDAZOLE [Suspect]
     Route: 065
  2. IVERMECTIN [Suspect]
     Route: 065
  3. NO CONCURRENT MEDICATION [Concomitant]

REACTIONS (4)
  - BLINDNESS UNILATERAL [None]
  - DRUG HYPERSENSITIVITY [None]
  - DRUG INTERACTION [None]
  - VISION BLURRED [None]
